FAERS Safety Report 6002188-8 (Version None)
Quarter: 2008Q4

REPORT INFORMATION
  Report Type: 
  Country: None (occurrence: None)
  Receive Date: 20081212
  Receipt Date: 20081204
  Transmission Date: 20090506
  Serious: Yes (Other)
  Sender: FDA-Public Use
  Company Number: JPI-P-005373

PATIENT
  Age: 59 Year
  Sex: Female
  Weight: 107.9561 kg

DRUGS (16)
  1. XYREM [Suspect]
     Indication: SLEEP DISORDER
     Dosage: 6.5 GM (3.25 GM, 2 IN 1 D), ORAL
     Route: 048
     Dates: start: 20080101, end: 20080101
  2. LORAZEPAM [Concomitant]
  3. TIZANIDINE HCL [Concomitant]
  4. DULOXETINE HYDROCHLORIDE [Concomitant]
  5. OMEPRAZOLE AND SODIUM BICARBONATE [Concomitant]
  6. EPLERENONE [Concomitant]
  7. VALSARTAN [Concomitant]
  8. LEVOTHYROXINE SODIUM [Concomitant]
  9. ACETAMINOPHEN, ISOMETHEPTENE, DICHORALPHENAZONE [Concomitant]
  10. MEPERIDINE HCL [Concomitant]
  11. ROSUVASTATIN SODIUM [Concomitant]
  12. NEFAZODONE HCL [Concomitant]
  13. PREGABALIN [Concomitant]
  14. POLYETHYLENE GLYCOL [Concomitant]
  15. ALMOTRIPTAN MALEATE [Concomitant]
  16. PROPOXYPHENE HCL AND ACETAMINOPHEN [Concomitant]

REACTIONS (5)
  - BLOOD PRESSURE INCREASED [None]
  - DISEASE PROGRESSION [None]
  - OEDEMA PERIPHERAL [None]
  - REACTION TO DRUG EXCIPIENTS [None]
  - RENAL FAILURE [None]
